FAERS Safety Report 8845969 (Version 1)
Quarter: 2012Q4

REPORT INFORMATION
  Report Type: Report from Study
  Country: FR (occurrence: FR)
  Receive Date: 20121017
  Receipt Date: 20121017
  Transmission Date: 20130627
  Serious: Yes (Hospitalization)
  Sender: FDA-Public Use
  Company Number: FR-ROCHE-1145537

PATIENT
  Age: 62 Year
  Sex: Male
  Weight: 57 kg

DRUGS (3)
  1. MYCOPHENOLATE MOFETIL [Suspect]
     Indication: RENAL TRANSPLANT
     Route: 048
     Dates: start: 20120525
  2. CERTICAN [Suspect]
     Indication: RENAL TRANSPLANT
     Route: 048
     Dates: start: 20120703, end: 20121010
  3. CORTANCYL [Suspect]
     Indication: RENAL TRANSPLANT
     Route: 048
     Dates: start: 20120526

REACTIONS (1)
  - Transplant rejection [Recovering/Resolving]
